APPROVED DRUG PRODUCT: AMLODIPINE BESYLATE
Active Ingredient: AMLODIPINE BESYLATE
Strength: EQ 5MG BASE
Dosage Form/Route: TABLET;ORAL
Application: A206524 | Product #002
Applicant: SUNSHINE LAKE PHARMA CO LTD
Approved: May 4, 2018 | RLD: No | RS: No | Type: DISCN